FAERS Safety Report 21676687 (Version 4)
Quarter: 2023Q1

REPORT INFORMATION
  Report Type: Report from Study
  Country: US (occurrence: US)
  Receive Date: 20221202
  Receipt Date: 20230308
  Transmission Date: 20230418
  Serious: No
  Sender: FDA-Public Use
  Company Number: US-002147023-NVSC2022US279455

PATIENT
  Sex: Female

DRUGS (1)
  1. KISQALI [Suspect]
     Active Substance: RIBOCICLIB
     Indication: Breast cancer
     Dosage: 600 MG, QD (LAST DOSE RECEIEVED ON 29 NOV 2022)
     Route: 048
     Dates: start: 202210

REACTIONS (4)
  - White blood cell count decreased [Unknown]
  - Nausea [Unknown]
  - Decreased appetite [Unknown]
  - Drug ineffective [Unknown]
